FAERS Safety Report 25788591 (Version 1)
Quarter: 2025Q3

REPORT INFORMATION
  Report Type: Spontaneous
  Country: CN (occurrence: CN)
  Receive Date: 20250910
  Receipt Date: 20250910
  Transmission Date: 20251020
  Serious: Yes (Other)
  Sender: BEIGENE
  Company Number: CN-BEIGENE-BGN-2025-015099

PATIENT
  Age: 76 Year
  Weight: 75 kg

DRUGS (18)
  1. TISLELIZUMAB [Suspect]
     Active Substance: TISLELIZUMAB
     Indication: Vaginal cancer
  2. TISLELIZUMAB [Suspect]
     Active Substance: TISLELIZUMAB
     Route: 041
  3. TISLELIZUMAB [Suspect]
     Active Substance: TISLELIZUMAB
     Route: 041
  4. TISLELIZUMAB [Suspect]
     Active Substance: TISLELIZUMAB
  5. BEVACIZUMAB [Suspect]
     Active Substance: BEVACIZUMAB
     Indication: Vaginal cancer
     Route: 041
  6. BEVACIZUMAB [Suspect]
     Active Substance: BEVACIZUMAB
  7. CARBOPLATIN [Suspect]
     Active Substance: CARBOPLATIN
     Indication: Vaginal cancer
     Route: 041
  8. CARBOPLATIN [Suspect]
     Active Substance: CARBOPLATIN
  9. PACLITAXEL [Suspect]
     Active Substance: PACLITAXEL
     Indication: Vaginal cancer
     Route: 041
  10. PACLITAXEL [Suspect]
     Active Substance: PACLITAXEL
  11. DEXTROSE [Concomitant]
     Active Substance: DEXTROSE MONOHYDRATE
     Indication: Vehicle solution use
     Route: 041
  12. DEXTROSE [Concomitant]
     Active Substance: DEXTROSE MONOHYDRATE
  13. SODIUM CHLORIDE [Concomitant]
     Active Substance: SODIUM CHLORIDE
     Indication: Vehicle solution use
  14. SODIUM CHLORIDE [Concomitant]
     Active Substance: SODIUM CHLORIDE
     Route: 041
  15. SODIUM CHLORIDE [Concomitant]
     Active Substance: SODIUM CHLORIDE
     Route: 041
  16. SODIUM CHLORIDE [Concomitant]
     Active Substance: SODIUM CHLORIDE
  17. SODIUM CHLORIDE [Concomitant]
     Active Substance: SODIUM CHLORIDE
     Route: 041
  18. SODIUM CHLORIDE [Concomitant]
     Active Substance: SODIUM CHLORIDE

REACTIONS (5)
  - Rash [Recovered/Resolved]
  - Skin ulcer [Recovered/Resolved]
  - Mouth ulceration [Recovered/Resolved]
  - Oropharyngeal pain [Not Recovered/Not Resolved]
  - Pruritus [Recovered/Resolved]
